FAERS Safety Report 5054538-7 (Version None)
Quarter: 2006Q3

REPORT INFORMATION
  Report Type: 
  Country: None (occurrence: None)
  Receive Date: 20060714
  Receipt Date: 20060628
  Transmission Date: 20061208
  Serious: Yes (Other)
  Sender: FDA-Public Use
  Company Number: S06-IRL-00615-01

PATIENT
  Age: 79 Year
  Sex: Male

DRUGS (5)
  1. MEMANTINE HCL [Suspect]
     Indication: DEMENTIA ALZHEIMER'S TYPE
     Dosage: 10 MG BID PO
     Route: 048
     Dates: start: 20040701, end: 20060131
  2. ARICEPT [Suspect]
     Indication: DEMENTIA ALZHEIMER'S TYPE
     Dosage: 10 MG BID PO
     Route: 048
  3. SINEMET [Concomitant]
  4. CAPRIN (ACETYLSALICYLIC ACID) [Concomitant]
  5. XATRAL XL (ALFUZOSIN HYDROCHLORIDE) [Concomitant]

REACTIONS (9)
  - AGITATION [None]
  - BALANCE DISORDER [None]
  - CONFUSIONAL STATE [None]
  - CONVULSION [None]
  - DRUG WITHDRAWAL SYNDROME [None]
  - HALLUCINATION [None]
  - INSOMNIA [None]
  - PARANOIA [None]
  - SUICIDAL BEHAVIOUR [None]
